FAERS Safety Report 10232353 (Version 2)
Quarter: 2014Q3

REPORT INFORMATION
  Report Type: Report from Study
  Country: DE (occurrence: DE)
  Receive Date: 20140612
  Receipt Date: 20140707
  Transmission Date: 20150326
  Serious: Yes (Hospitalization, Other)
  Sender: FDA-Public Use
  Company Number: DE-ROCHE-1416375

PATIENT
  Age: 81 Year
  Sex: Male

DRUGS (2)
  1. RANIBIZUMAB [Suspect]
     Active Substance: RANIBIZUMAB
     Indication: DIABETIC RETINAL OEDEMA
  2. RANIBIZUMAB [Suspect]
     Active Substance: RANIBIZUMAB
     Indication: VISUAL IMPAIRMENT
     Dosage: LAST DOSE RECEIVED ON 13/SEP/2013
     Route: 050
     Dates: start: 20121212

REACTIONS (2)
  - Visual acuity reduced [Unknown]
  - Pancreatic neoplasm [Recovering/Resolving]

NARRATIVE: CASE EVENT DATE: 20131216
